FAERS Safety Report 9331414 (Version 1)
Quarter: 2013Q2

REPORT INFORMATION
  Report Type: Spontaneous
  Country: CN (occurrence: CN)
  Receive Date: 20130605
  Receipt Date: 20130605
  Transmission Date: 20140414
  Serious: Yes (Other)
  Sender: FDA-Public Use
  Company Number: CN-ASTRAZENECA-2013SE39914

PATIENT
  Age: 16602 Day
  Sex: Female

DRUGS (2)
  1. LOSEC [Suspect]
     Indication: GASTRIC ULCER
     Route: 048
     Dates: start: 20120614, end: 20120705
  2. BISMUTH POTASSIUM CITRATE [Concomitant]

REACTIONS (3)
  - Melaena [Not Recovered/Not Resolved]
  - Somnolence [Not Recovered/Not Resolved]
  - Lethargy [Unknown]
